FAERS Safety Report 23711499 (Version 1)
Quarter: 2024Q2

REPORT INFORMATION
  Report Type: Spontaneous
  Country: US (occurrence: None)
  Receive Date: 20240404
  Receipt Date: 20240404
  Transmission Date: 20240715
  Serious: No
  Sender: FDA-Public Use
  Company Number: None

PATIENT
  Sex: Female

DRUGS (2)
  1. DIMETHYL FUMARATE [Suspect]
     Active Substance: DIMETHYL FUMARATE
     Indication: Multiple sclerosis
     Dosage: FREQUENCY : TWICE A DAY;?
     Route: 048
     Dates: start: 20230127
  2. ERGOCALCIFER [Concomitant]

REACTIONS (4)
  - Therapy interrupted [None]
  - Abortion spontaneous [None]
  - Exposure during pregnancy [None]
  - Multiple sclerosis relapse [None]
